FAERS Safety Report 8941207 (Version 1)
Quarter: 2012Q4

REPORT INFORMATION
  Report Type: 
  Country: CA (occurrence: CA)
  Receive Date: 20121203
  Receipt Date: 20121203
  Transmission Date: 20130627
  Serious: Yes (Hospitalization)
  Sender: FDA-Public Use
  Company Number: CA-ELI_LILLY_AND_COMPANY-CA201211007130

PATIENT
  Age: 80 Year
  Sex: Female

DRUGS (10)
  1. FORTEO [Suspect]
     Indication: OSTEOPOROSIS
     Dosage: 20 ug, qd
     Route: 058
     Dates: start: 20110420
  2. PREDNISONE [Concomitant]
     Dosage: UNK, unknown
     Route: 065
  3. PREVACID [Concomitant]
     Dosage: UNK, unknown
     Route: 065
  4. COUMADIN [Concomitant]
     Dosage: UNK, unknown
     Route: 065
  5. METOPROLOL [Concomitant]
     Dosage: UNK, unknown
     Route: 065
  6. AVAPRO [Concomitant]
     Dosage: UNK, unknown
     Route: 065
  7. LIPITOR [Concomitant]
     Dosage: UNK, unknown
     Route: 065
  8. LYRICA [Concomitant]
     Dosage: UNK, unknown
     Route: 065
  9. HYDROMORPHONE [Concomitant]
     Dosage: UNK, unknown
     Route: 065
  10. VENLAFAXINE [Concomitant]
     Dosage: UNK, unknown
     Route: 065

REACTIONS (1)
  - Fall [Not Recovered/Not Resolved]
